FAERS Safety Report 24286945 (Version 2)
Quarter: 2024Q3

REPORT INFORMATION
  Report Type: Spontaneous
  Country: US (occurrence: US)
  Receive Date: 20240905
  Receipt Date: 20240917
  Transmission Date: 20241017
  Serious: No
  Sender: ABBVIE
  Company Number: US-ABBVIE-5908110

PATIENT
  Age: 50 Year
  Sex: Male

DRUGS (1)
  1. DALVANCE [Suspect]
     Active Substance: DALBAVANCIN
     Indication: Osteomyelitis
     Dosage: TIME INTERVAL: AS NECESSARY: FORM STRENGTH: 500 MILLIGRAM
     Route: 042

REACTIONS (2)
  - Product use in unapproved indication [Unknown]
  - Back pain [Recovered/Resolved]
